FAERS Safety Report 5114325-8 (Version None)
Quarter: 2006Q3

REPORT INFORMATION
  Report Type: 
  Country: None (occurrence: None)
  Receive Date: 20060925
  Receipt Date: 20060821
  Transmission Date: 20061208
  Serious: Yes (Congenital Anomaly)
  Sender: FDA-Public Use
  Company Number: US-MERCK-0608USA04736

PATIENT

DRUGS (5)
  1. SINGULAIR [Suspect]
     Dates: start: 20041101, end: 20051115
  2. ADVAIR DISKUS 100/50 [Suspect]
     Dates: start: 20040901, end: 20051115
  3. VENTOLIN [Concomitant]
  4. NASACORT [Concomitant]
  5. ASTELIN [Concomitant]

REACTIONS (1)
  - CLEFT PALATE [None]
